FAERS Safety Report 19068944 (Version 1)
Quarter: 2021Q1

REPORT INFORMATION
  Report Type: Spontaneous
  Country: US (occurrence: US)
  Receive Date: 20210329
  Receipt Date: 20210329
  Transmission Date: 20210420
  Serious: No
  Sender: FDA-Public Use
  Company Number: US-MYLANLABS-2021M1016329

PATIENT
  Sex: Female
  Weight: 134 kg

DRUGS (2)
  1. OZEMPIC [Concomitant]
     Active Substance: SEMAGLUTIDE
     Dosage: UNK, QW
  2. SEMGLEE [Suspect]
     Active Substance: INSULIN GLARGINE
     Indication: TYPE 2 DIABETES MELLITUS
     Dosage: 58 INTERNATIONAL UNIT, QD (28 UNITS MORNING/ 30 UNITS EVENING)
     Route: 058

REACTIONS (3)
  - Inappropriate schedule of product administration [Unknown]
  - Device issue [Not Recovered/Not Resolved]
  - Wrong technique in device usage process [Unknown]
